FAERS Safety Report 18558501 (Version 1)
Quarter: 2020Q4

REPORT INFORMATION
  Report Type: Spontaneous
  Country: US (occurrence: US)
  Receive Date: 20201130
  Receipt Date: 20201130
  Transmission Date: 20210114
  Serious: No
  Sender: FDA-Public Use
  Company Number: US-BAUSCH-BL-2020-033374

PATIENT
  Age: 78 Year
  Sex: Female
  Weight: 58.57 kg

DRUGS (7)
  1. BESIVANCE [Suspect]
     Active Substance: BESIFLOXACIN
     Dosage: ONE DROP INSTILLED IN BOTH EYES?DOSE DECREASED
     Route: 031
     Dates: start: 202011, end: 20201108
  2. BESIVANCE [Suspect]
     Active Substance: BESIFLOXACIN
     Indication: EYE INFECTION
     Dosage: ONE DROP INSTILLED IN BOTH EYES
     Route: 031
     Dates: start: 20201102, end: 202011
  3. METFORMIN [Concomitant]
     Active Substance: METFORMIN HYDROCHLORIDE
     Indication: PRODUCT USED FOR UNKNOWN INDICATION
  4. SIMVASTATIN. [Concomitant]
     Active Substance: SIMVASTATIN
     Indication: PRODUCT USED FOR UNKNOWN INDICATION
  5. COENZYME Q10 [Concomitant]
     Active Substance: DIETARY SUPPLEMENT\UBIDECARENONE
     Indication: PRODUCT USED FOR UNKNOWN INDICATION
  6. ERYTHROMYCIN OPHTHALMIC SOLUTION [Concomitant]
     Indication: EYE INFECTION
     Route: 047
  7. JANUMET [Concomitant]
     Active Substance: METFORMIN HYDROCHLORIDE\SITAGLIPTIN PHOSPHATE
     Indication: PRODUCT USED FOR UNKNOWN INDICATION

REACTIONS (1)
  - Eye irritation [Recovering/Resolving]

NARRATIVE: CASE EVENT DATE: 20201102
